FAERS Safety Report 6266511-1 (Version None)
Quarter: 2009Q3

REPORT INFORMATION
  Report Type: 
  Country: None (occurrence: None)
  Receive Date: 20090710
  Receipt Date: 20090622
  Transmission Date: 20100115
  Serious: Yes (Other)
  Sender: FDA-Public Use
  Company Number: ADE2009-0691

PATIENT
  Age: 56 Year
  Sex: Male

DRUGS (2)
  1. FLUOXETINE HCL [Suspect]
     Indication: ANXIETY
     Dosage: 40MG - DAILY - ORAL; 3- 5 MONTHS
     Route: 048
  2. FLUOXETINE HCL [Suspect]
     Indication: DEPRESSION
     Dosage: 40MG - DAILY - ORAL; 3- 5 MONTHS
     Route: 048

REACTIONS (1)
  - TRISMUS [None]
